FAERS Safety Report 7403575-3 (Version None)
Quarter: 2011Q2

REPORT INFORMATION
  Report Type: 
  Country: None (occurrence: None)
  Receive Date: 20110408
  Receipt Date: 20110328
  Transmission Date: 20111010
  Serious: Yes (Life-Threatening, Hospitalization)
  Sender: FDA-Public Use
  Company Number: GB-PFIZER INC-2011069137

PATIENT
  Age: 78 Year
  Sex: Female

DRUGS (2)
  1. CYTARABINE [Suspect]
     Dosage: UNK
     Dates: start: 20100329, end: 20100811
  2. GEMTUZUMAB OZOGAMICIN [Suspect]
     Dosage: UNK
     Dates: start: 20100329, end: 20100811

REACTIONS (8)
  - SEPSIS [None]
  - HAEMODIALYSIS [None]
  - PNEUMONIA ASPIRATION [None]
  - CLOSTRIDIAL INFECTION [None]
  - CHOLECYSTITIS [None]
  - UNRESPONSIVE TO STIMULI [None]
  - VENTRICULAR TACHYCARDIA [None]
  - VENTRICULAR FIBRILLATION [None]
